FAERS Safety Report 7909891-0 (Version None)
Quarter: 2011Q4

REPORT INFORMATION
  Report Type: 
  Country: None (occurrence: None)
  Receive Date: 20111111
  Receipt Date: 20111110
  Transmission Date: 20120403
  Serious: Yes (Hospitalization)
  Sender: FDA-Public Use
  Company Number: IT-BAYER-2011-109134

PATIENT
  Age: 80 Year
  Sex: Female

DRUGS (8)
  1. KANRENOL [Concomitant]
  2. PLAVIX [Suspect]
     Indication: CORONARY ANGIOPLASTY
     Dosage: DAILY DOSE 75 MG
     Route: 048
     Dates: start: 20111012, end: 20111028
  3. ASPIRIN [Suspect]
     Indication: CORONARY ANGIOPLASTY
     Dosage: 100 MG, QD
     Route: 048
     Dates: start: 20111012
  4. BISOPROLOL [Concomitant]
  5. ATORVASTATIN [Concomitant]
  6. LANSOPRAZOLE [Concomitant]
  7. FUROSEMIDE [Concomitant]
  8. RAMIPRIL [Concomitant]

REACTIONS (2)
  - CARDIAC FAILURE CONGESTIVE [None]
  - ANAEMIA [None]
